FAERS Safety Report 23660321 (Version 3)
Quarter: 2024Q2

REPORT INFORMATION
  Report Type: Spontaneous
  Country: JP (occurrence: JP)
  Receive Date: 20240321
  Receipt Date: 20240603
  Transmission Date: 20240715
  Serious: Yes (Hospitalization, Other)
  Sender: FDA-Public Use
  Company Number: JP-JNJFOC-20240359780

PATIENT
  Age: 72 Year
  Sex: Female

DRUGS (7)
  1. SIMPONI [Suspect]
     Active Substance: GOLIMUMAB
     Indication: Rheumatoid arthritis
     Route: 058
     Dates: start: 20230315, end: 20240315
  2. METHOTREXATE [Suspect]
     Active Substance: METHOTREXATE
     Indication: Rheumatoid arthritis
     Dosage: 8MG
     Route: 048
     Dates: end: 20240214
  3. METHOTREXATE [Suspect]
     Active Substance: METHOTREXATE
     Indication: Rheumatoid arthritis
     Dosage: 10MG
     Route: 048
     Dates: start: 202402, end: 20240313
  4. METHOTREXATE [Suspect]
     Active Substance: METHOTREXATE
     Dosage: 10MG
     Route: 048
     Dates: start: 2024
  5. PREDNISOLONE [Suspect]
     Active Substance: PREDNISOLONE
     Indication: Rheumatoid arthritis
     Route: 048
     Dates: end: 2023
  6. PREDNISOLONE [Suspect]
     Active Substance: PREDNISOLONE
     Dosage: 10MG
     Route: 048
     Dates: start: 20231105, end: 20240313
  7. PREDNISOLONE [Suspect]
     Active Substance: PREDNISOLONE
     Dosage: DOSE UNKNOWN
     Route: 048
     Dates: start: 2024

REACTIONS (2)
  - Pneumocystis jirovecii pneumonia [Recovered/Resolved]
  - Rheumatoid arthritis [Unknown]

NARRATIVE: CASE EVENT DATE: 20231101
